FAERS Safety Report 4152581 (Version 2)
Quarter: 2012Q4

REPORT INFORMATION
  Report Type: 
  Country: US (occurrence: US)
  Receive Date: 20040603
  Receipt Date: 20121206
  Transmission Date: 20130627
  Serious: Yes (Other)
  Sender: FDA-Public Use
  Company Number: US-JNJFOC-20040505817

PATIENT
  Sex: Female

DRUGS (6)
  1. MOTRIN [Suspect]
     Indication: PRODUCT USED FOR UNKNOWN INDICATION
     Route: 048
  2. LEVOTHYROXINE SODIUM [Concomitant]
  3. MORPHINE SULFATE [Concomitant]
  4. CARISOPRODOL [Concomitant]
  5. DESLORATADINE [Concomitant]
  6. TEMAZEPAM [Concomitant]

REACTIONS (2)
  - Ulcer haemorrhage [Unknown]
  - Drug ineffective [Unknown]
